FAERS Safety Report 5913379-6 (Version None)
Quarter: 2008Q4

REPORT INFORMATION
  Report Type: 
  Country: None (occurrence: None)
  Receive Date: 20081009
  Receipt Date: 20081001
  Transmission Date: 20090506
  Serious: Yes (Hospitalization, Other)
  Sender: FDA-Public Use
  Company Number: PHHY2008CA22232

PATIENT
  Sex: Female

DRUGS (5)
  1. CLOZARIL [Suspect]
     Indication: SCHIZOAFFECTIVE DISORDER
     Dosage: 350 MG,
     Route: 048
     Dates: start: 20020410
  2. PAXIL [Interacting]
     Dosage: 10 MG, QD
     Route: 048
     Dates: end: 20080529
  3. PAXIL [Interacting]
     Dosage: 10 MG, QAM
     Route: 048
     Dates: start: 20080910
  4. LITHIUM [Concomitant]
     Dosage: 300 MG, QAM
     Route: 048
  5. LITHIUM [Concomitant]
     Dosage: 600 MG, QHS
     Route: 048

REACTIONS (4)
  - CONFUSIONAL STATE [None]
  - DRUG INTERACTION [None]
  - DRUG LEVEL INCREASED [None]
  - LIVER DISORDER [None]
